FAERS Safety Report 16006774 (Version 2)
Quarter: 2019Q4

REPORT INFORMATION
  Report Type: Report from Study
  Country: FR (occurrence: FR)
  Receive Date: 20190226
  Receipt Date: 20191003
  Transmission Date: 20200122
  Serious: Yes (Hospitalization, Other)
  Sender: FDA-Public Use
  Company Number: FR-MYLANLABS-2019M1016271

PATIENT
  Age: 22 Year
  Sex: Male
  Weight: 85 kg

DRUGS (28)
  1. DOXORUBICIN [Suspect]
     Active Substance: DOXORUBICIN
     Indication: HODGKIN^S DISEASE
     Dosage: 30 MILLIGRAM
     Route: 042
     Dates: start: 20160712, end: 20160823
  2. BRENTUXIMAB VEDOTIN [Suspect]
     Active Substance: BRENTUXIMAB VEDOTIN
     Indication: HODGKIN^S DISEASE
     Dosage: 150 MG, UNK
     Route: 042
     Dates: start: 20160712, end: 20170420
  3. BRENTUXIMAB VEDOTIN [Suspect]
     Active Substance: BRENTUXIMAB VEDOTIN
     Dosage: 140 UNK
     Route: 042
     Dates: start: 20160809
  4. BRENTUXIMAB VEDOTIN [Suspect]
     Active Substance: BRENTUXIMAB VEDOTIN
     Dosage: 145 MILLIGRAM
     Route: 042
     Dates: start: 20170307, end: 20170420
  5. CYTARABINE. [Concomitant]
     Active Substance: CYTARABINE
     Indication: HODGKIN^S DISEASE
     Dosage: UNK
     Route: 050
     Dates: start: 20160604, end: 20160606
  6. IFOSFAMIDE. [Concomitant]
     Active Substance: IFOSFAMIDE
     Dosage: UNK
     Route: 065
     Dates: start: 20160625
  7. VINORELBINE [Suspect]
     Active Substance: VINORELBINE TARTRATE
     Dosage: 38 MILLIGRAM
     Route: 042
     Dates: start: 20160823
  8. NIVOLUMAB [Concomitant]
     Active Substance: NIVOLUMAB
     Dosage: 200 MILLIGRAM
     Route: 042
     Dates: start: 20160619
  9. NIVOLUMAB [Concomitant]
     Active Substance: NIVOLUMAB
     Dosage: 200 MG, UNK
     Route: 042
     Dates: start: 20160919
  10. GEMCITABINE. [Suspect]
     Active Substance: GEMCITABINE
     Dosage: 2015 MG, UNK
     Route: 042
     Dates: start: 20160712, end: 20160823
  11. DOXORUBICIN [Suspect]
     Active Substance: DOXORUBICIN
     Dosage: 28 MG, UNK
     Route: 042
     Dates: start: 20160823
  12. BRENTUXIMAB VEDOTIN [Suspect]
     Active Substance: BRENTUXIMAB VEDOTIN
     Dosage: 150 MILLIGRAM
     Route: 042
     Dates: start: 20160519
  13. VINORELBINE [Suspect]
     Active Substance: VINORELBINE TARTRATE
     Dosage: 40 MG, UNK
     Route: 042
     Dates: start: 20160712, end: 20160823
  14. BENDAMUSTINE [Concomitant]
     Active Substance: BENDAMUSTINE
     Dosage: UNK
     Dates: start: 20161102, end: 20170515
  15. NIVOLUMAB [Concomitant]
     Active Substance: NIVOLUMAB
     Dosage: UNK
     Dates: start: 20160914
  16. BRENTUXIMAB VEDOTIN [Suspect]
     Active Substance: BRENTUXIMAB VEDOTIN
     Dosage: 135 MILLIGRAM
     Route: 042
     Dates: start: 20160831
  17. DEXAMETHASONE. [Concomitant]
     Active Substance: DEXAMETHASONE
     Indication: HODGKIN^S DISEASE
     Dosage: UNK
     Route: 048
     Dates: start: 20160603
  18. BRENTUXIMAB VEDOTIN [Suspect]
     Active Substance: BRENTUXIMAB VEDOTIN
     Dosage: 140 MILLIGRAM
     Route: 042
     Dates: start: 20161025
  19. NIVOLUMAB [Concomitant]
     Active Substance: NIVOLUMAB
     Dosage: UNK
     Route: 065
     Dates: start: 20160914
  20. GEMCITABINE. [Suspect]
     Active Substance: GEMCITABINE
     Indication: HODGKIN^S DISEASE
     Dosage: UNK
     Route: 042
     Dates: start: 20160625
  21. GEMCITABINE. [Suspect]
     Active Substance: GEMCITABINE
     Dosage: 1500 MILLIGRAM
     Route: 042
     Dates: start: 20160712, end: 20160823
  22. BRENTUXIMAB VEDOTIN [Suspect]
     Active Substance: BRENTUXIMAB VEDOTIN
     Dosage: UNK
     Route: 042
     Dates: start: 20160914
  23. NIVOLUMAB [Concomitant]
     Active Substance: NIVOLUMAB
     Dosage: UNK
     Dates: start: 20161102
  24. GEMCITABINE. [Suspect]
     Active Substance: GEMCITABINE
     Dosage: 1901 UNK
     Route: 042
     Dates: start: 20160823
  25. BRENTUXIMAB VEDOTIN [Suspect]
     Active Substance: BRENTUXIMAB VEDOTIN
     Dosage: 135 MILLIGRAM
     Route: 042
     Dates: start: 20161005
  26. VINORELBINE [Suspect]
     Active Substance: VINORELBINE TARTRATE
     Indication: HODGKIN^S DISEASE
     Dosage: UNK
     Route: 042
     Dates: start: 20160625
  27. OXALIPLATIN. [Concomitant]
     Active Substance: OXALIPLATIN
     Indication: HODGKIN^S DISEASE
     Dosage: UNK
     Route: 050
     Dates: start: 20160603, end: 20160603
  28. NIVOLUMAB [Concomitant]
     Active Substance: NIVOLUMAB
     Dosage: UNK
     Dates: start: 20161102

REACTIONS (25)
  - Back pain [Unknown]
  - Weight decreased [Unknown]
  - Hypercalcaemia [Recovered/Resolved]
  - Dyspnoea [Unknown]
  - Pyrexia [Recovered/Resolved]
  - Hypoalbuminaemia [Recovered/Resolved]
  - Anaemia [Recovered/Resolved]
  - Sepsis [Recovered/Resolved]
  - Vomiting [Recovered/Resolved]
  - Off label use [Unknown]
  - Therapeutic product effect incomplete [Unknown]
  - Constipation [Unknown]
  - Nausea [Recovered/Resolved]
  - Decreased appetite [Recovered/Resolved]
  - Weight increased [Unknown]
  - Neuralgia [Recovered/Resolved]
  - Musculoskeletal chest pain [Recovered/Resolved]
  - Hodgkin^s disease [Not Recovered/Not Resolved]
  - Full blood count abnormal [Unknown]
  - Adverse event [Unknown]
  - Fungal infection [Unknown]
  - Pain [Recovering/Resolving]
  - Overdose [Recovered/Resolved]
  - Thrombocytopenia [Unknown]
  - Neuropathy peripheral [Unknown]

NARRATIVE: CASE EVENT DATE: 2016
